FAERS Safety Report 7641410-9 (Version None)
Quarter: 2011Q3

REPORT INFORMATION
  Report Type: 
  Country: None (occurrence: None)
  Receive Date: 20110728
  Receipt Date: 20110725
  Transmission Date: 20111222
  Serious: Yes (Other)
  Sender: FDA-Public Use
  Company Number: US-PFIZER INC-2011168899

PATIENT
  Sex: Female
  Weight: 90.7 kg

DRUGS (7)
  1. LYRICA [Suspect]
     Indication: FIBROMYALGIA
     Dosage: 75 MG, 2X/DAY
     Route: 048
     Dates: start: 20110601, end: 20110713
  2. NEXIUM [Concomitant]
     Indication: GASTROOESOPHAGEAL REFLUX DISEASE
     Dosage: UNK
  3. LYRICA [Suspect]
     Dosage: 150 MG, 2X/DAY
     Dates: start: 20110718
  4. SYNTHROID [Concomitant]
     Indication: HYPERTHYROIDISM
     Dosage: UNK
  5. LYRICA [Suspect]
     Dosage: 100 MG, 2X/DAY
     Dates: start: 20110714, end: 20110717
  6. BENICAR [Concomitant]
     Indication: HYPERTENSION
     Dosage: UNK, 1X/DAY
  7. PREMPRO [Concomitant]
     Indication: SUPPLEMENTATION THERAPY
     Dosage: 0.3/1.5 MG, UNK

REACTIONS (4)
  - TONSILLAR HYPERTROPHY [None]
  - BACK PAIN [None]
  - LOCAL SWELLING [None]
  - DRUG INEFFECTIVE [None]
